FAERS Safety Report 5882047-1 (Version None)
Quarter: 2008Q3

REPORT INFORMATION
  Report Type: 
  Country: None (occurrence: None)
  Receive Date: 20080912
  Receipt Date: 20080722
  Transmission Date: 20090109
  Serious: No
  Sender: FDA-Public Use
  Company Number: US-ABBOTT-08P-163-0465245-00

PATIENT
  Sex: Male

DRUGS (2)
  1. HUMIRA [Suspect]
     Indication: CROHN'S DISEASE
     Route: 058
     Dates: start: 20070101, end: 20080101
  2. HUMIRA [Suspect]
     Dates: start: 20080701

REACTIONS (7)
  - CHILLS [None]
  - COLD SWEAT [None]
  - LOSS OF CONSCIOUSNESS [None]
  - MEDICATION ERROR [None]
  - MOUTH HAEMORRHAGE [None]
  - RECTAL HAEMORRHAGE [None]
  - TREMOR [None]
